FAERS Safety Report 5380521-8 (Version None)
Quarter: 2007Q3

REPORT INFORMATION
  Report Type: 
  Country: None (occurrence: None)
  Receive Date: 20070706
  Receipt Date: 20070613
  Transmission Date: 20080115
  Serious: Yes (Hospitalization)
  Sender: FDA-Public Use
  Company Number: PHHO2007NL09939

PATIENT
  Age: 26 Year
  Weight: 93.7 kg

DRUGS (3)
  1. MYCOPHENOLIC ACID ERL+ [Suspect]
     Indication: RENAL TRANSPLANT
     Dosage: 720 MG DAILY
     Route: 048
     Dates: start: 20060622, end: 20061018
  2. COTRIM [Suspect]
  3. HYDROCHLOROTHIAZIDE [Suspect]

REACTIONS (2)
  - BLOOD CREATININE INCREASED [None]
  - RENAL IMPAIRMENT [None]
